FAERS Safety Report 4444132-0 (Version None)
Quarter: 2004Q3

REPORT INFORMATION
  Report Type: 
  Country: None (occurrence: None)
  Receive Date: 20040729
  Receipt Date: 20030828
  Transmission Date: 20050211
  Serious: Yes (Hospitalization, Other)
  Sender: FDA-Public Use
  Company Number: USA-2003-0009906

PATIENT
  Age: 28 Year
  Sex: Female

DRUGS (8)
  1. MS CONTIN [Suspect]
     Dosage: 15 MG, SEE TEXT
  2. VALIUM [Suspect]
     Indication: INSOMNIA
     Dates: start: 20020111
  3. PERCOCET [Suspect]
     Dosage: 115 MG
  4. DURAGESIC [Suspect]
     Dosage: UNK PATCH
  5. ALCOHOL (ETHANOL) [Suspect]
  6. AMBIEN [Concomitant]
  7. MOBIC [Concomitant]
  8. LORCET-HD [Concomitant]

REACTIONS (13)
  - DIARRHOEA [None]
  - DRUG ABUSER [None]
  - DRUG DEPENDENCE [None]
  - DRUG WITHDRAWAL SYNDROME [None]
  - FALL [None]
  - HYPERHIDROSIS [None]
  - INSOMNIA [None]
  - IRRITABILITY [None]
  - MUSCLE CRAMP [None]
  - PAIN [None]
  - POLYSUBSTANCE ABUSE [None]
  - RESTLESSNESS [None]
  - TREMOR [None]
